FAERS Safety Report 21556217 (Version 1)
Quarter: 2022Q4

REPORT INFORMATION
  Report Type: Spontaneous
  Country: US (occurrence: None)
  Receive Date: 20221103
  Receipt Date: 20221103
  Transmission Date: 20230113
  Serious: No
  Sender: FDA-Public Use
  Company Number: None

PATIENT
  Age: 75 Year
  Sex: Female

DRUGS (1)
  1. COSENTYX [Suspect]
     Active Substance: SECUKINUMAB
     Indication: Arthritis enteropathic
     Dosage: FREQUENCY : MONTHLY;?
     Route: 058
     Dates: start: 202204

REACTIONS (2)
  - COVID-19 [None]
  - Therapy interrupted [None]
